FAERS Safety Report 9629251 (Version 1)
Quarter: 2013Q4

REPORT INFORMATION
  Report Type: Spontaneous
  Country: US (occurrence: US)
  Receive Date: 20131017
  Receipt Date: 20131017
  Transmission Date: 20140711
  Serious: No
  Sender: FDA-Public Use
  Company Number: US-ASTRAZENECA-2013SE69743

PATIENT
  Age: 62 Year
  Sex: Male
  Weight: 83.9 kg

DRUGS (4)
  1. CRESTOR [Suspect]
     Indication: DYSLIPIDAEMIA
     Route: 048
     Dates: start: 201307
  2. CRESTOR [Suspect]
     Indication: HYPERLIPIDAEMIA
     Route: 048
     Dates: start: 201307
  3. CRESTOR [Suspect]
     Indication: ARTERIOSCLEROSIS
     Route: 048
     Dates: start: 201307
  4. BABY ASPIRIN [Concomitant]
     Indication: CEREBROVASCULAR ACCIDENT
     Dates: start: 201307

REACTIONS (4)
  - Low density lipoprotein decreased [Unknown]
  - High density lipoprotein increased [Unknown]
  - Dry mouth [Unknown]
  - Therapeutic response unexpected [Unknown]
